FAERS Safety Report 10185886 (Version 2)
Quarter: 2014Q2

REPORT INFORMATION
  Report Type: Spontaneous
  Country: AT (occurrence: AT)
  Receive Date: 20140521
  Receipt Date: 20140521
  Transmission Date: 20141212
  Serious: Yes (Other)
  Sender: FDA-Public Use
  Company Number: PHHY2014AT027480

PATIENT
  Sex: Female

DRUGS (1)
  1. GILENYA [Suspect]
     Route: 048

REACTIONS (4)
  - Granulocytopenia [Not Recovered/Not Resolved]
  - Leukopenia [Not Recovered/Not Resolved]
  - Lymphopenia [Unknown]
  - Prescribed underdose [Unknown]
